FAERS Safety Report 19739400 (Version 2)
Quarter: 2021Q3

REPORT INFORMATION
  Report Type: Report from Study
  Country: ZA (occurrence: ZA)
  Receive Date: 20210823
  Receipt Date: 20210825
  Transmission Date: 20211014
  Serious: Yes (Other)
  Sender: FDA-Public Use
  Company Number: ZA-BIOGEN-2021BI01039834

PATIENT
  Sex: Female
  Weight: 66 kg

DRUGS (1)
  1. TYSABRI [Suspect]
     Active Substance: NATALIZUMAB
     Indication: RELAPSING-REMITTING MULTIPLE SCLEROSIS
     Route: 042
     Dates: start: 20200727

REACTIONS (5)
  - Memory impairment [Unknown]
  - Soliloquy [Unknown]
  - Mobility decreased [Unknown]
  - Dementia [Unknown]
  - Derealisation [Unknown]

NARRATIVE: CASE EVENT DATE: 2021
